FAERS Safety Report 5274428-4 (Version None)
Quarter: 2007Q1

REPORT INFORMATION
  Report Type: 
  Country: None (occurrence: None)
  Receive Date: 20070323
  Receipt Date: 20070313
  Transmission Date: 20070707
  Serious: Yes (Death, Hospitalization)
  Sender: FDA-Public Use
  Company Number: PFIZER INC-2007018909

PATIENT
  Age: 41 Year
  Sex: Male

DRUGS (1)
  1. EXUBERA [Suspect]
     Indication: DIABETES MELLITUS INSULIN-DEPENDENT

REACTIONS (3)
  - CARDIAC ARREST [None]
  - FALL [None]
  - HYPOGLYCAEMIA [None]
